FAERS Safety Report 22053201 (Version 1)
Quarter: 2023Q1

REPORT INFORMATION
  Report Type: Spontaneous
  Country: AU (occurrence: AU)
  Receive Date: 20230302
  Receipt Date: 20230302
  Transmission Date: 20230418
  Serious: Yes (Disabling)
  Sender: FDA-Public Use
  Company Number: AU-BoehringerIngelheim-2023-BI-220876

PATIENT
  Sex: Female

DRUGS (1)
  1. ALTEPLASE [Suspect]
     Active Substance: ALTEPLASE
     Indication: Thrombolysis
     Route: 065

REACTIONS (2)
  - Cerebrovascular accident [Unknown]
  - Angioedema [Unknown]

NARRATIVE: CASE EVENT DATE: 20230101
